FAERS Safety Report 24433938 (Version 1)
Quarter: 2024Q4

REPORT INFORMATION
  Report Type: Report from Study
  Country: US (occurrence: US)
  Receive Date: 20241014
  Receipt Date: 20241014
  Transmission Date: 20250114
  Serious: Yes (Other)
  Sender: ROCHE
  Company Number: US-ROCHE-10000046071

PATIENT
  Age: 42 Year
  Sex: Female

DRUGS (1)
  1. OCREVUS [Suspect]
     Active Substance: OCRELIZUMAB
     Indication: Relapsing multiple sclerosis
     Dosage: DOT: 13-DEC-2021, 13-JUN-2022, 12-JUN-2023
     Route: 065
     Dates: start: 20190612

REACTIONS (5)
  - Sinusitis [Not Recovered/Not Resolved]
  - Decreased immune responsiveness [Unknown]
  - Pruritus [Unknown]
  - Malaise [Not Recovered/Not Resolved]
  - Stress [Not Recovered/Not Resolved]
